FAERS Safety Report 10015856 (Version 1)
Quarter: 2014Q1

REPORT INFORMATION
  Report Type: Spontaneous
  Country: US (occurrence: US)
  Receive Date: 20140317
  Receipt Date: 20140317
  Transmission Date: 20141002
  Serious: Yes (Hospitalization)
  Sender: FDA-Public Use
  Company Number: US-GLAXOSMITHKLINE-A1065171A

PATIENT
  Age: 41 Year
  Sex: Female

DRUGS (2)
  1. ADVAIR [Suspect]
     Indication: ASTHMA
     Route: 065
  2. INHALERS [Concomitant]

REACTIONS (1)
  - Asthma [Unknown]
